FAERS Safety Report 9508709 (Version 1)
Quarter: 2013Q3

REPORT INFORMATION
  Report Type: Spontaneous
  Country: FR (occurrence: FR)
  Receive Date: 20130909
  Receipt Date: 20130909
  Transmission Date: 20140515
  Serious: Yes (Death, Hospitalization)
  Sender: FDA-Public Use
  Company Number: FR-GLAXOSMITHKLINE-B0919112A

PATIENT
  Age: 63 Year
  Sex: Female

DRUGS (8)
  1. ARIXTRA [Suspect]
     Indication: PRODUCT USED FOR UNKNOWN INDICATION
     Dosage: 2.5MG PER DAY
     Route: 058
     Dates: start: 20130727, end: 20130816
  2. FEMARA [Concomitant]
     Route: 065
  3. CORTANCYL [Concomitant]
     Route: 065
  4. PLAQUENIL [Concomitant]
     Route: 065
  5. SERESTA [Concomitant]
     Route: 065
  6. RISPERDAL [Concomitant]
     Route: 065
  7. ZOPICLONE [Concomitant]
     Route: 065
  8. LASILIX [Concomitant]
     Dosage: 40MG UNKNOWN
     Route: 048

REACTIONS (3)
  - Cerebral haemorrhage [Fatal]
  - Altered state of consciousness [Unknown]
  - Intraventricular haemorrhage [Fatal]
